FAERS Safety Report 6079151-4 (Version None)
Quarter: 2009Q1

REPORT INFORMATION
  Report Type: 
  Country: None (occurrence: None)
  Receive Date: 20090216
  Receipt Date: 20090206
  Transmission Date: 20090719
  Serious: Yes (Hospitalization)
  Sender: FDA-Public Use
  Company Number: A0768554A

PATIENT
  Age: 68 Year
  Sex: Female
  Weight: 77.3 kg

DRUGS (2)
  1. AVANDIA [Suspect]
     Dosage: 4MG PER DAY
     Route: 065
     Dates: start: 20020101, end: 20070101
  2. AMARYL [Concomitant]
     Dates: start: 19900101

REACTIONS (4)
  - ANEURYSM [None]
  - ARTERIOSCLEROSIS [None]
  - CEREBROVASCULAR ACCIDENT [None]
  - HYPERTENSION [None]
